FAERS Safety Report 6726404-X (Version None)
Quarter: 2010Q2

REPORT INFORMATION
  Report Type: 
  Country: None (occurrence: None)
  Receive Date: 20100514
  Receipt Date: 20100507
  Transmission Date: 20101027
  Serious: Yes (Life-Threatening, Hospitalization)
  Sender: FDA-Public Use
  Company Number: B0652718A

PATIENT
  Age: 3 Month

DRUGS (1)
  1. CLAVAMOX [Suspect]
     Indication: OTITIS MEDIA
     Route: 048
     Dates: start: 20090201

REACTIONS (4)
  - APATHY [None]
  - APPARENT LIFE THREATENING EVENT [None]
  - CARDIO-RESPIRATORY ARREST [None]
  - FATIGUE [None]
